FAERS Safety Report 5399014-7 (Version None)
Quarter: 2007Q3

REPORT INFORMATION
  Report Type: 
  Country: None (occurrence: None)
  Receive Date: 20070723
  Receipt Date: 20070723
  Transmission Date: 20080115
  Serious: Yes (Hospitalization, Other)
  Sender: FDA-Public Use
  Company Number: None

PATIENT
  Age: 37 Year
  Sex: Male
  Weight: 94.6 kg

DRUGS (2)
  1. LORAZEPAM [Suspect]
     Indication: AGITATION
     Dosage: 1 MG ONCE IV
     Route: 042
     Dates: start: 20070501, end: 20070501
  2. MORPHINE [Suspect]
     Indication: PAIN
     Dosage: 6MG ONCE IV
     Route: 042
     Dates: start: 20070501, end: 20070501

REACTIONS (4)
  - CONDITION AGGRAVATED [None]
  - PAIN [None]
  - SYNCOPE [None]
  - UNRESPONSIVE TO STIMULI [None]
